FAERS Safety Report 6536967-5 (Version None)
Quarter: 2010Q1

REPORT INFORMATION
  Report Type: 
  Country: None (occurrence: None)
  Receive Date: 20100107
  Receipt Date: 20091222
  Transmission Date: 20100710
  Serious: Yes (Death)
  Sender: FDA-Public Use
  Company Number: 2009AP005215

PATIENT
  Age: 65 Year
  Sex: Female

DRUGS (5)
  1. DIVALPROEX SODIUM [Suspect]
     Indication: SCHIZOAFFECTIVE DISORDER BIPOLAR TYPE
     Dosage: 1500 MG;QD
  2. HALOPERIDOL [Suspect]
     Indication: SCHIZOAFFECTIVE DISORDER BIPOLAR TYPE
     Dosage: 10 MG;BID
  3. VALPROATE SODIUM [Suspect]
  4. VALPROATE SODIUM [Suspect]
  5. VENLAFAXINE HCL [Suspect]
     Indication: SCHIZOAFFECTIVE DISORDER BIPOLAR TYPE
     Dosage: 150 MG;BID

REACTIONS (8)
  - AGITATION [None]
  - BACK PAIN [None]
  - BREAST CANCER METASTATIC [None]
  - CONDITION AGGRAVATED [None]
  - DELUSION [None]
  - HALLUCINATION [None]
  - IRRITABILITY [None]
  - PSYCHOTIC DISORDER [None]
